FAERS Safety Report 7118425-2 (Version None)
Quarter: 2010Q4

REPORT INFORMATION
  Report Type: 
  Country: None (occurrence: None)
  Receive Date: 20101020
  Receipt Date: 20100810
  Transmission Date: 20110411
  Serious: Yes (Other)
  Sender: FDA-Public Use
  Company Number: US-WYE-H16845010

PATIENT
  Age: 84 Year
  Sex: Male
  Weight: 80.81 kg

DRUGS (2)
  1. ADVIL PM [Suspect]
     Indication: ANALGESIC THERAPY
     Dosage: 2 LIQUI-GELS ONCE TOTAL, ORAL
     Route: 048
     Dates: start: 20100807, end: 20100807
  2. ADVIL PM [Suspect]
     Indication: INSOMNIA
     Dosage: 2 LIQUI-GELS ONCE TOTAL, ORAL
     Route: 048
     Dates: start: 20100807, end: 20100807

REACTIONS (2)
  - DYSPNOEA [None]
  - FOREIGN BODY [None]
